FAERS Safety Report 14079920 (Version 1)
Quarter: 2017Q4

REPORT INFORMATION
  Report Type: Report from Study
  Country: HU (occurrence: HU)
  Receive Date: 20171012
  Receipt Date: 20171012
  Transmission Date: 20180321
  Serious: Yes (Hospitalization)
  Sender: FDA-Public Use
  Company Number: HU-TEVA-814908ISR

PATIENT
  Age: 67 Year
  Sex: Female

DRUGS (32)
  1. IRINOTECAN [Suspect]
     Active Substance: IRINOTECAN
     Dosage: DAY 1 OF EACH 14-DAY CYCLE
     Route: 042
     Dates: start: 20150507, end: 20150507
  2. FLUOROURACIL. [Suspect]
     Active Substance: FLUOROURACIL
     Indication: COLORECTAL CANCER
     Dosage: BOLUS OVER 15 MINUTES; DAY 1 OF EACH 14-DAY CYCLE
     Route: 040
     Dates: start: 20150423, end: 20150423
  3. FLUOROURACIL. [Suspect]
     Active Substance: FLUOROURACIL
     Dosage: INFUSION OVER 46 HOURS; DAY 1 O F EACH 14-DAY CYCLE
     Route: 042
     Dates: start: 20150423, end: 20150425
  4. FLUOROURACIL. [Suspect]
     Active Substance: FLUOROURACIL
     Dosage: INFUSION OVER 46 HOURS; DAY 1 O F EACH 14-DAY CYCLE
     Route: 042
     Dates: start: 20150507, end: 20150509
  5. SALSOL [Concomitant]
     Active Substance: ALBUTEROL SULFATE
     Indication: TOXIC SKIN ERUPTION
     Route: 041
     Dates: start: 20150427, end: 20150427
  6. ZARZIO [Concomitant]
     Active Substance: FILGRASTIM
     Indication: LEUKOPENIA
     Dosage: 30 MILLION IU
     Route: 051
     Dates: start: 20150430, end: 20150504
  7. ABT-888(VELIPARIB) [Suspect]
     Active Substance: VELIPARIB
     Indication: COLORECTAL CANCER
     Route: 048
     Dates: start: 20150421, end: 20150511
  8. QUAMATE [Concomitant]
     Route: 042
     Dates: start: 20150507, end: 20150507
  9. FENISTIL [Concomitant]
     Active Substance: DIMETHINDENE
     Indication: TOXIC SKIN ERUPTION
     Dosage: 3 MILLIGRAM DAILY;
     Route: 058
     Dates: start: 20150428, end: 20150429
  10. TIENAM [Concomitant]
     Active Substance: CILASTATIN SODIUM\IMIPENEM
     Dosage: 1500 MILLIGRAM DAILY;
     Route: 058
     Dates: start: 20150501, end: 20150504
  11. MEDROL [Concomitant]
     Active Substance: METHYLPREDNISOLONE
     Dosage: 16 MILLIGRAM DAILY;
     Route: 048
     Dates: start: 20150507, end: 20150507
  12. IRINOTECAN [Suspect]
     Active Substance: IRINOTECAN
     Indication: COLORECTAL CANCER
     Dosage: DAY 1 OF EACH 14-DAY CYCLE
     Route: 042
     Dates: start: 20150423, end: 20150423
  13. CALCIMUSC [Concomitant]
     Active Substance: CALCIUM GLUCONATE
     Route: 041
     Dates: start: 20150426, end: 20150426
  14. MEDROL [Concomitant]
     Active Substance: METHYLPREDNISOLONE
     Dosage: 32 MILLIGRAM DAILY;
     Route: 048
     Dates: start: 20150505, end: 20150506
  15. KCL [Concomitant]
     Active Substance: POTASSIUM CHLORIDE
     Indication: HYPOKALAEMIA
     Route: 042
     Dates: start: 20150506, end: 20150506
  16. MILURIT [Concomitant]
     Active Substance: ALLOPURINOL
     Indication: HYPERURICAEMIA
     Dosage: 300 MILLIGRAM DAILY;
     Route: 048
     Dates: start: 20150420
  17. ONDANSETRON [Concomitant]
     Active Substance: ONDANSETRON
     Indication: PREMEDICATION
     Route: 041
     Dates: start: 20150423, end: 20150423
  18. MEDROL [Concomitant]
     Active Substance: METHYLPREDNISOLONE
     Indication: TOXIC SKIN ERUPTION
     Dosage: 64 MILLIGRAM DAILY;
     Route: 048
     Dates: start: 20150503, end: 20150504
  19. LEUCOVORIN. [Concomitant]
     Active Substance: LEUCOVORIN
     Indication: COLORECTAL CANCER
     Route: 042
     Dates: start: 20150423, end: 20150507
  20. MEGESTROL ACETATE. [Concomitant]
     Active Substance: MEGESTROL ACETATE
     Indication: PROPHYLAXIS
     Dosage: 320 MILLIGRAM DAILY;
     Route: 048
     Dates: start: 20150420
  21. CONTRAMAL [Concomitant]
     Active Substance: TRAMADOL HYDROCHLORIDE
     Indication: PAIN
     Dosage: 36 GTT DAILY;
     Route: 048
     Dates: start: 20150420
  22. SUPRASTIN [Concomitant]
     Active Substance: CHLOROPYRAMINE HYDROCHLORIDE
     Indication: TOXIC SKIN ERUPTION
     Dosage: 3 ML DAILY;
     Dates: start: 20150427, end: 20150427
  23. TIENAM [Concomitant]
     Active Substance: CILASTATIN SODIUM\IMIPENEM
     Indication: PROPHYLAXIS
     Dosage: 2000 MILLIGRAM DAILY;
     Route: 058
     Dates: start: 20150430, end: 20150430
  24. QUAMATE [Concomitant]
     Indication: PREMEDICATION
     Route: 041
     Dates: start: 20150423, end: 20150423
  25. ELOCOM [Concomitant]
     Active Substance: MOMETASONE FUROATE
     Indication: TOXIC SKIN ERUPTION
     Dosage: 2 MILLIGRAM DAILY;
     Route: 003
     Dates: start: 20150429, end: 20150505
  26. RINGERS SOLUTION [Concomitant]
     Active Substance: CALCIUM CHLORIDE\POTASSIUM CHLORIDE\SODIUM CHLORIDE
     Route: 042
     Dates: start: 20150506, end: 20150506
  27. ADEXOR [Concomitant]
     Indication: PROPHYLAXIS
     Dosage: 70 MILLIGRAM DAILY;
     Route: 048
     Dates: start: 2015
  28. NEBIVOLOL. [Concomitant]
     Active Substance: NEBIVOLOL
     Indication: HYPERTENSION
     Dosage: 5 MILLIGRAM DAILY;
     Route: 048
     Dates: start: 2015
  29. CALCIMUSC [Concomitant]
     Active Substance: CALCIUM GLUCONATE
     Route: 041
     Dates: start: 20150427, end: 20150429
  30. ATROPINE SULFATE. [Concomitant]
     Active Substance: ATROPINE SULFATE
     Indication: PREMEDICATION
     Route: 058
     Dates: start: 20150423, end: 20150423
  31. EMETRON [Concomitant]
     Indication: PROPHYLAXIS
     Dosage: 6 MILLIGRAM/MILLILITERS DAILY;
     Route: 042
     Dates: start: 20150507, end: 20150507
  32. SILEGON [Concomitant]
     Indication: METASTASES TO LIVER
     Dosage: 210 MILLIGRAM DAILY;
     Route: 048
     Dates: start: 20150312

REACTIONS (1)
  - Gastrointestinal obstruction [Recovered/Resolved]

NARRATIVE: CASE EVENT DATE: 20150515
